FAERS Safety Report 5114804-3 (Version None)
Quarter: 2006Q3

REPORT INFORMATION
  Report Type: 
  Country: None (occurrence: None)
  Receive Date: 20060921
  Receipt Date: 20060915
  Transmission Date: 20061208
  Serious: Yes (Hospitalization)
  Sender: FDA-Public Use
  Company Number: 2006-04988

PATIENT
  Age: 47 Year
  Sex: Female

DRUGS (6)
  1. CARBOPLATIN [Suspect]
     Indication: OVARIAN CANCER
  2. CISPLATIN [Suspect]
  3. PACLITAXEL [Concomitant]
  4. EPIRUBICIN [Concomitant]
  5. GEMCITABINE [Concomitant]
  6. TOPOTECAN (TOPOTECAN) [Concomitant]

REACTIONS (4)
  - METASTASES TO BONE [None]
  - METASTASES TO MUSCLE [None]
  - NEOPLASM RECURRENCE [None]
  - OVARIAN CANCER METASTATIC [None]
